FAERS Safety Report 24154367 (Version 1)
Quarter: 2024Q3

REPORT INFORMATION
  Report Type: Report from Study
  Country: DE (occurrence: DE)
  Receive Date: 20240731
  Receipt Date: 20240731
  Transmission Date: 20241017
  Serious: Yes (Hospitalization)
  Sender: ABBVIE
  Company Number: DE-ABBVIE-5858935

PATIENT
  Sex: Female

DRUGS (2)
  1. CARBIDOPA\LEVODOPA [Suspect]
     Active Substance: CARBIDOPA\LEVODOPA
     Indication: Parkinson^s disease
     Dosage: MD: 2.2 ML; CRD: 2.2 ML/H; CRN: 2.2ML/H, ED: 0.9 ML
     Route: 050
     Dates: start: 20120525
  2. CARBIDOPA\LEVODOPA [Suspect]
     Active Substance: CARBIDOPA\LEVODOPA

REACTIONS (8)
  - Gait disturbance [Unknown]
  - Restless legs syndrome [Unknown]
  - Therapeutic product effect variable [Unknown]
  - Constipation [Unknown]
  - Osteoarthritis [Unknown]
  - Depression [Unknown]
  - Torticollis [Unknown]
  - Hypokinesia [Unknown]

NARRATIVE: CASE EVENT DATE: 20180101
